FAERS Safety Report 6059522-2 (Version None)
Quarter: 2009Q1

REPORT INFORMATION
  Report Type: 
  Country: None (occurrence: None)
  Receive Date: 20090130
  Receipt Date: 20090123
  Transmission Date: 20090719
  Serious: Yes (Other)
  Sender: FDA-Public Use
  Company Number: US-ELI_LILLY_AND_COMPANY-US200812004702

PATIENT
  Sex: Male

DRUGS (23)
  1. HUMULIN R [Suspect]
     Indication: TYPE 2 DIABETES MELLITUS
     Dosage: 30 U, UNK
     Dates: start: 19880101
  2. HUMULIN R [Suspect]
     Dosage: 10 U, EACH EVENING
  3. LANTUS [Concomitant]
     Indication: DIABETES MELLITUS
     Dosage: 65 U, EACH EVENING
  4. PROZAC [Concomitant]
     Indication: BACK PAIN
     Dosage: 10 MG, DAILY (1/D)
  5. COREG [Concomitant]
     Dosage: 25 MG, DAILY (1/D)
     Route: 048
  6. DIOVAN [Concomitant]
     Dosage: 160 MG, 2/D
     Route: 048
  7. PROTONIX [Concomitant]
     Dosage: 40 MG, DAILY (1/D)
     Route: 048
  8. BUMEX [Concomitant]
     Dosage: 1 MG, 2/D
     Route: 048
  9. MAGNESIUM OXIDE [Concomitant]
     Dosage: 800 MG, 2/D
     Route: 048
  10. RELAFEN [Concomitant]
     Dosage: 500 MG, 2/D
     Route: 048
  11. KLOR-CON [Concomitant]
     Dosage: 20 MEQ, DAILY (1/D)
     Route: 048
  12. VITAMIN B6 [Concomitant]
     Dosage: 200 MG, DAILY (1/D)
     Route: 048
  13. VITAMIN B-12 [Concomitant]
     Dosage: 500 UNK, DAILY (1/D)
     Route: 048
  14. FOLIC ACID [Concomitant]
     Dosage: 1 MG, DAILY (1/D)
     Route: 048
  15. ASPIRIN [Concomitant]
     Dosage: 81 MG, DAILY (1/D)
     Route: 048
  16. SULAR [Concomitant]
     Dosage: 17 MG, 2/D
     Route: 048
  17. CALCIPOTRIENE [Concomitant]
     Dosage: UNK, DAILY (1/D)
  18. PROCTOSOL [Concomitant]
     Indication: HAEMORRHOIDS
     Dosage: UNK, AS NEEDED
  19. FIORICET [Concomitant]
     Indication: MIGRAINE
     Dosage: UNK, AS NEEDED
  20. DARVOCET-N 100 [Concomitant]
     Indication: BACK PAIN
     Dosage: 100 UNK, 4/D
     Route: 048
  21. ANTIVERT [Concomitant]
     Dosage: 25 MG, AS NEEDED
  22. TRAVATAN [Concomitant]
     Dosage: UNK, EACH EVENING
     Route: 047
  23. TIMOLOL [Concomitant]
     Dosage: UNK, 2/D
     Route: 047

REACTIONS (7)
  - ANXIETY [None]
  - BLADDER CANCER [None]
  - BLOOD GLUCOSE DECREASED [None]
  - BLOOD GLUCOSE INCREASED [None]
  - BLOOD UREA INCREASED [None]
  - PROSTATE CANCER [None]
  - SLEEP DISORDER [None]
